FAERS Safety Report 6510913-2 (Version None)
Quarter: 2009Q4

REPORT INFORMATION
  Report Type: 
  Country: None (occurrence: None)
  Receive Date: 20091222
  Receipt Date: 20090130
  Transmission Date: 20100525
  Serious: No
  Sender: FDA-Public Use
  Company Number: US-ASTRAZENECA-2009UW02978

PATIENT
  Sex: Male

DRUGS (8)
  1. CRESTOR [Suspect]
     Indication: HYPERCHOLESTEROLAEMIA
     Route: 048
     Dates: start: 20060701, end: 20090129
  2. ZETIA [Concomitant]
  3. PLAVIX [Concomitant]
     Indication: CARDIAC DISORDER
  4. TOPROL-XL [Concomitant]
  5. FOLIC ACID [Concomitant]
  6. DITROPAN [Concomitant]
     Indication: MUSCLE SPASMS
  7. ASPIRIN [Concomitant]
  8. MVT [Concomitant]

REACTIONS (4)
  - ABDOMINAL PAIN [None]
  - GASTROENTERITIS VIRAL [None]
  - LYMPHADENOPATHY [None]
  - NECK PAIN [None]
